FAERS Safety Report 8819021 (Version 1)
Quarter: 2012Q4

REPORT INFORMATION
  Report Type: 
  Country: US (occurrence: US)
  Receive Date: 20121001
  Receipt Date: 20121001
  Transmission Date: 20130627
  Serious: No
  Sender: FDA-Public Use
  Company Number: US-TEVA-361365USA

PATIENT

DRUGS (2)
  1. NUVIGIL [Suspect]
     Route: 048
  2. PROVIGIL [Suspect]
     Route: 048

REACTIONS (1)
  - Oedema peripheral [Recovered/Resolved]
